FAERS Safety Report 22253864 (Version 2)
Quarter: 2023Q2

REPORT INFORMATION
  Report Type: Report from Study
  Country: MX (occurrence: MX)
  Receive Date: 20230426
  Receipt Date: 20230508
  Transmission Date: 20230721
  Serious: Yes (Other)
  Sender: FDA-Public Use
  Company Number: MX-002147023-NVSC2023MX093535

PATIENT
  Age: 70 Year
  Sex: Male
  Weight: 71 kg

DRUGS (7)
  1. EXFORGE HCT [Suspect]
     Active Substance: AMLODIPINE BESYLATE\HYDROCHLOROTHIAZIDE\VALSARTAN
     Indication: Blood pressure increased
     Dosage: 0.5 DOSAGE FORM, QD
     Route: 048
     Dates: start: 202101
  2. METOPROLOL SUCCINATE [Suspect]
     Active Substance: METOPROLOL SUCCINATE
     Indication: Hypertension
     Dosage: 0.5 DOSAGE FORM, Q12H (11 YEARS AGO)
     Route: 065
  3. ASPIRIN [Concomitant]
     Active Substance: ASPIRIN
     Indication: Anticoagulant therapy
     Dosage: 1 DOSAGE FORM, QD (11 YEARS AGO)
     Route: 048
  4. AMLODIPINE [Concomitant]
     Active Substance: AMLODIPINE BESYLATE
     Indication: Hypertension
     Dosage: 1 DOSAGE FORM, QD (11 YEARS AGO)
     Route: 048
     Dates: end: 202101
  5. ATORVASTATIN [Concomitant]
     Active Substance: ATORVASTATIN
     Indication: Blood cholesterol increased
     Dosage: 1 DOSAGE FORM, QD (11 YEARS AGO)
     Route: 048
  6. METFORMIN [Concomitant]
     Active Substance: METFORMIN HYDROCHLORIDE
     Indication: Diabetes mellitus
     Dosage: 1 DOSAGE FORM, QD (STARTED 11 YEARS AGO AND STOPPED 2 YEARS AGO (THE EXACT DATE IS UNKNOWN))
     Route: 048
  7. GLIMETAL LEX [Concomitant]
     Indication: Diabetes mellitus
     Dosage: 1 DOSAGE FORM, QD (2 YEARS AGO)
     Route: 048

REACTIONS (2)
  - Diabetes mellitus [Recovering/Resolving]
  - Off label use [Not Recovered/Not Resolved]

NARRATIVE: CASE EVENT DATE: 20210101
